FAERS Safety Report 9963659 (Version 1)
Quarter: 2014Q1

REPORT INFORMATION
  Report Type: Report from Study
  Country: US (occurrence: US)
  Receive Date: 20140305
  Receipt Date: 20140305
  Transmission Date: 20141002
  Serious: No
  Sender: FDA-Public Use
  Company Number: US-ABBVIE-13P-163-1118838-00

PATIENT
  Age: 26 Year
  Sex: Female

DRUGS (8)
  1. HUMIRA [Suspect]
     Indication: RHEUMATOID ARTHRITIS
     Dates: start: 20120225
  2. METHOTREXATE [Suspect]
     Indication: PRODUCT USED FOR UNKNOWN INDICATION
  3. METHOTREXATE [Suspect]
     Route: 048
     Dates: end: 201204
  4. METHOTREXATE [Suspect]
     Dates: start: 201204
  5. METHOTREXATE [Suspect]
  6. METHOTREXATE [Suspect]
  7. MELOXICAM [Concomitant]
     Indication: RHEUMATOID ARTHRITIS
     Dosage: UNKNOWN DOSE, DAILY
  8. FOLIC ACID [Concomitant]
     Indication: VITAMIN SUPPLEMENTATION

REACTIONS (8)
  - Malaise [Unknown]
  - Gastric disorder [Recovering/Resolving]
  - Nausea [Unknown]
  - Toothache [Not Recovered/Not Resolved]
  - Toothache [Not Recovered/Not Resolved]
  - Tooth infection [Unknown]
  - Tooth abscess [Unknown]
  - Migraine [Unknown]
